FAERS Safety Report 7962382-3 (Version None)
Quarter: 2011Q4

REPORT INFORMATION
  Report Type: 
  Country: None (occurrence: None)
  Receive Date: 20111206
  Receipt Date: 20111129
  Transmission Date: 20120403
  Serious: Yes (Other)
  Sender: FDA-Public Use
  Company Number: AUR-APL-2011-05988

PATIENT
  Age: 59 Year
  Sex: Male
  Weight: 53 kg

DRUGS (5)
  1. INSULIN [Concomitant]
  2. COREG [Concomitant]
  3. FOSRENOL [Concomitant]
  4. RENAVITE (RENAVIT) [Concomitant]
  5. GABAPENTIN [Suspect]
     Indication: NEUROPATHY PERIPHERAL
     Dosage: 300 MG (100 MG,3 IN 1 D),ORAL ; 600 MG (300 MG,2 IN 1 D),ORAL
     Route: 048

REACTIONS (5)
  - SOMNOLENCE [None]
  - BLINDNESS [None]
  - DYSKINESIA [None]
  - MEMORY IMPAIRMENT [None]
  - CONFUSIONAL STATE [None]
